FAERS Safety Report 8769040 (Version 1)
Quarter: 2012Q4

REPORT INFORMATION
  Report Type: 
  Country: US (occurrence: US)
  Receive Date: 20120904
  Receipt Date: 20120904
  Transmission Date: 20130627
  Serious: No
  Sender: FDA-Public Use
  Company Number: US-AMGEN-USASP2012049430

PATIENT
  Age: 58 Year
  Sex: Female
  Weight: 82.09 kg

DRUGS (1)
  1. ENBREL [Suspect]
     Indication: RHEUMATOID ARTHRITIS
     Dosage: 50 mg, qwk
     Route: 058
     Dates: start: 20120124

REACTIONS (5)
  - Arthralgia [Not Recovered/Not Resolved]
  - Ear discomfort [Recovered/Resolved]
  - Sinus disorder [Recovered/Resolved]
  - Feeling cold [Recovered/Resolved]
  - Respiratory tract infection [Recovered/Resolved]
